FAERS Safety Report 12982668 (Version 7)
Quarter: 2017Q1

REPORT INFORMATION
  Report Type: Report from Study
  Country: HU (occurrence: HU)
  Receive Date: 20161129
  Receipt Date: 20170130
  Transmission Date: 20170428
  Serious: Yes (Death, Life-Threatening, Hospitalization, Other)
  Sender: FDA-Public Use
  Company Number: HU-GLAXOSMITHKLINE-HU2016174807

PATIENT
  Age: 40 Year
  Sex: Female
  Weight: 104 kg

DRUGS (1)
  1. BELIMUMAB [Suspect]
     Active Substance: BELIMUMAB
     Indication: SYSTEMIC LUPUS ERYTHEMATOSUS
     Dosage: UNK UNK, CYC
     Route: 042
     Dates: start: 20160609, end: 20161024

REACTIONS (1)
  - Necrotising fasciitis [Fatal]

NARRATIVE: CASE EVENT DATE: 20161113
